FAERS Safety Report 17183695 (Version 1)
Quarter: 2019Q4

REPORT INFORMATION
  Report Type: Spontaneous
  Country: AT (occurrence: AT)
  Receive Date: 20191220
  Receipt Date: 20191220
  Transmission Date: 20200122
  Serious: Yes (Other)
  Sender: FDA-Public Use
  Company Number: AT-PFIZER INC-2019545483

PATIENT
  Age: 88 Year
  Sex: Male

DRUGS (2)
  1. MEROPENEM. [Suspect]
     Active Substance: MEROPENEM
     Indication: WOUND INFECTION
     Dosage: 4 G, 1X/DAY
     Route: 042
     Dates: start: 20190917, end: 20191001
  2. ZYVOXID [Suspect]
     Active Substance: LINEZOLID
     Indication: BACTERAEMIA
     Dosage: 1200 MG, 1X/DAY
     Route: 042
     Dates: start: 20190917, end: 20191001

REACTIONS (1)
  - Granulocytopenia [Recovered/Resolved]

NARRATIVE: CASE EVENT DATE: 20190926
